FAERS Safety Report 11123664 (Version 1)
Quarter: 2015Q2

REPORT INFORMATION
  Report Type: Spontaneous
  Country: BR (occurrence: BR)
  Receive Date: 20150519
  Receipt Date: 20150519
  Transmission Date: 20150821
  Serious: Yes (Hospitalization)
  Sender: FDA-Public Use
  Company Number: BR-AMGEN-BRASP2013036908

PATIENT
  Age: 21 Year
  Sex: Female
  Weight: 60 kg

DRUGS (11)
  1. ENBREL [Suspect]
     Active Substance: ETANERCEPT
     Dosage: 50 MG, 2X/WEEK
     Route: 058
  2. CIPROFLOXACIN                      /00697202/ [Concomitant]
     Indication: SEPSIS
     Dosage: UNK
     Route: 042
  3. DRAMAMINE [Suspect]
     Active Substance: DIMENHYDRINATE
     Indication: DERMATOLOGIC EXAMINATION ABNORMAL
     Dosage: 1 AMPOULE, UNSPECIFIED FREQUENCY
     Route: 042
     Dates: start: 20150222, end: 20150222
  4. ENBREL [Suspect]
     Active Substance: ETANERCEPT
     Indication: PSORIASIS
     Dosage: 50 MG, WEEKLY
     Route: 058
     Dates: start: 20121101, end: 20150111
  5. PREDNISONE. [Suspect]
     Active Substance: PREDNISONE
     Dosage: 10 MG, DAILY
     Route: 065
  6. CLINDAMYCIN [Concomitant]
     Active Substance: CLINDAMYCIN\CLINDAMYCIN PHOSPHATE
     Indication: SEPSIS
     Dosage: UNK
  7. PREDNISONE. [Suspect]
     Active Substance: PREDNISONE
     Indication: DERMATOLOGIC EXAMINATION ABNORMAL
     Dosage: 40 MG, DAILY
     Route: 048
     Dates: start: 20150226, end: 20150301
  8. VITAMIN B [Suspect]
     Active Substance: VITAMIN B
     Indication: DERMATOLOGIC EXAMINATION ABNORMAL
     Dosage: 1 DF, UNSPECIFIED FREQUENCY
     Route: 042
     Dates: start: 20150222, end: 20150222
  9. ENBREL [Suspect]
     Active Substance: ETANERCEPT
     Dosage: UNK
     Route: 065
     Dates: start: 20121101
  10. ENBREL [Suspect]
     Active Substance: ETANERCEPT
     Dosage: UNK
     Route: 065
  11. METHOTREXATE SODIUM. [Suspect]
     Active Substance: METHOTREXATE SODIUM
     Indication: PSORIASIS
     Dosage: 15 MG, WEEKLY
     Route: 048
     Dates: start: 201405, end: 20150111

REACTIONS (12)
  - Vomiting [Unknown]
  - Erythema multiforme [Recovering/Resolving]
  - Dyspnoea [Not Recovered/Not Resolved]
  - Skin exfoliation [Recovering/Resolving]
  - Psoriasis [Unknown]
  - Sinusitis [Not Recovered/Not Resolved]
  - Skin irritation [Unknown]
  - Skin infection [Recovered/Resolved]
  - Sepsis [Recovered/Resolved]
  - Drug ineffective [Unknown]
  - Influenza [Not Recovered/Not Resolved]
  - Nausea [Unknown]

NARRATIVE: CASE EVENT DATE: 2013
